FAERS Safety Report 9777011 (Version 1)
Quarter: 2013Q4

REPORT INFORMATION
  Report Type: Spontaneous
  Country: US (occurrence: US)
  Receive Date: 20131221
  Receipt Date: 20131221
  Transmission Date: 20140711
  Serious: Yes (Other)
  Sender: FDA-Public Use
  Company Number: US-AMGEN-USASP2013088484

PATIENT
  Age: 68 Year
  Sex: Female

DRUGS (1)
  1. NPLATE [Suspect]
     Indication: IMMUNE THROMBOCYTOPENIC PURPURA
     Dosage: 50 MUG, UNK
     Route: 065
     Dates: start: 201311

REACTIONS (3)
  - Drug ineffective [Unknown]
  - Platelet count decreased [Unknown]
  - Unevaluable event [Unknown]
